FAERS Safety Report 25987028 (Version 1)
Quarter: 2025Q4

REPORT INFORMATION
  Report Type: Spontaneous
  Country: US (occurrence: US)
  Receive Date: 20251103
  Receipt Date: 20251103
  Transmission Date: 20260118
  Serious: No
  Sender: ROCHE
  Company Number: US-ROCHE-10000418354

PATIENT
  Sex: Female
  Weight: 65.77 kg

DRUGS (2)
  1. ACTEMRA [Suspect]
     Active Substance: TOCILIZUMAB
     Indication: Rheumatoid arthritis
     Dosage: 162 MG SC ONCE A WEEK EVERY TUESDAY
     Route: 058
     Dates: start: 20250930
  2. CORTICOSTEROID NOS [Concomitant]
     Active Substance: CORTICOSTEROID NOS

REACTIONS (7)
  - Speech disorder [Unknown]
  - Weight decreased [Unknown]
  - Headache [Unknown]
  - Diplopia [Unknown]
  - Abdominal pain upper [Unknown]
  - Diarrhoea [Unknown]
  - Gastrointestinal disorder [Unknown]
